FAERS Safety Report 10182459 (Version 4)
Quarter: 2017Q2

REPORT INFORMATION
  Report Type: Report from Study
  Country: MX (occurrence: MX)
  Receive Date: 20140520
  Receipt Date: 20170608
  Transmission Date: 20170829
  Serious: Yes (Other)
  Sender: FDA-Public Use
  Company Number: MX-ROCHE-1004443

PATIENT

DRUGS (1)
  1. BEVACIZUMAB [Suspect]
     Active Substance: BEVACIZUMAB
     Indication: RETINOPATHY OF PREMATURITY
     Dosage: PATIENTS EITHER RECEIVED 1.25 MG BEVACIZUMAB IN CONJUNCTION WITH A PARATHENTESIS (N=23) OR 0.75 MG B
     Route: 050

REACTIONS (13)
  - Respiratory distress [Unknown]
  - Cerebral palsy [Unknown]
  - Subretinal fibrosis [Unknown]
  - Phlebitis [Unknown]
  - Intraocular pressure increased [Unknown]
  - Retinal ischaemia [Unknown]
  - Psychomotor retardation [Unknown]
  - Ocular vascular disorder [Unknown]
  - Apnoea [Unknown]
  - Cataract [Unknown]
  - Off label use [Unknown]
  - Retinal detachment [Unknown]
  - Vitreous haemorrhage [Unknown]
